FAERS Safety Report 18381792 (Version 1)
Quarter: 2020Q4

REPORT INFORMATION
  Report Type: Spontaneous
  Country: US (occurrence: US)
  Receive Date: 20201013
  Receipt Date: 20201013
  Transmission Date: 20210114
  Serious: Yes (Death)
  Sender: FDA-Public Use
  Company Number: None

PATIENT
  Age: 41 Year
  Sex: Female
  Weight: 68.1 kg

DRUGS (19)
  1. FAMOTIDINE. [Concomitant]
     Active Substance: FAMOTIDINE
  2. SYMTUZA [Concomitant]
     Active Substance: COBICISTAT\DARUNAVIR\EMTRICITABINE\TENOFOVIR ALAFENAMIDE
  3. PACLITAXEL. [Suspect]
     Active Substance: PACLITAXEL
     Indication: CERVIX CARCINOMA
     Dosage: ?          OTHER FREQUENCY:ONCE EVERY 21 DAYS;?
     Route: 042
     Dates: start: 20200826, end: 20201011
  4. MEROPENEM. [Concomitant]
     Active Substance: MEROPENEM
  5. NEULASTA [Concomitant]
     Active Substance: PEGFILGRASTIM
  6. ONDANSETRON [Suspect]
     Active Substance: ONDANSETRON
     Indication: NAUSEA
     Dosage: ?          OTHER FREQUENCY:ONCE EVERY 7 DAYS;?
     Route: 048
     Dates: start: 20200703, end: 20201011
  7. ONDANSETRON [Suspect]
     Active Substance: ONDANSETRON
     Indication: VOMITING
     Dosage: ?          OTHER FREQUENCY:ONCE EVERY 7 DAYS;?
     Route: 048
     Dates: start: 20200703, end: 20201011
  8. D+C+E+T ALAFENAMIDE [Concomitant]
  9. ZOSYN [Concomitant]
     Active Substance: PIPERACILLIN SODIUM\TAZOBACTAM SODIUM
  10. AVASTIN [Concomitant]
     Active Substance: BEVACIZUMAB
  11. OXYCODONE AND ACETAMINOPHEN [Concomitant]
     Active Substance: ACETAMINOPHEN\OXYCODONE HYDROCHLORIDE
  12. METOCLOPRAMIDE. [Concomitant]
     Active Substance: METOCLOPRAMIDE
  13. DIPHENHYDRAMINE. [Concomitant]
     Active Substance: DIPHENHYDRAMINE
  14. CISPLATIN. [Concomitant]
     Active Substance: CISPLATIN
  15. AMLODIPINE BESYLATE. [Concomitant]
     Active Substance: AMLODIPINE BESYLATE
  16. DOLUTEGRAVIR [Concomitant]
     Active Substance: DOLUTEGRAVIR
  17. ENOXAPRIN [Concomitant]
     Active Substance: ENOXAPARIN
  18. TIVICAY [Concomitant]
     Active Substance: DOLUTEGRAVIR SODIUM
  19. DEXAMETHASONE. [Concomitant]
     Active Substance: DEXAMETHASONE

REACTIONS (1)
  - Death [None]

NARRATIVE: CASE EVENT DATE: 20201011
